FAERS Safety Report 26157716 (Version 1)
Quarter: 2025Q4

REPORT INFORMATION
  Report Type: Spontaneous
  Country: JP (occurrence: JP)
  Receive Date: 20251215
  Receipt Date: 20251215
  Transmission Date: 20260118
  Serious: Yes (Other)
  Sender: ARDELYX
  Company Number: JP-ARDELYX-2025ARDX009078

PATIENT
  Age: 77 Year
  Sex: Female

DRUGS (3)
  1. TENAPANOR HYDROCHLORIDE [Suspect]
     Active Substance: TENAPANOR HYDROCHLORIDE
     Indication: Product used for unknown indication
     Dosage: UNK
     Route: 048
     Dates: start: 20250310
  2. DARBEPOETIN ALFA [Suspect]
     Active Substance: DARBEPOETIN ALFA
     Indication: Product used for unknown indication
     Dosage: UNK
     Route: 065
  3. DARBEPOETIN ALFA [Suspect]
     Active Substance: DARBEPOETIN ALFA
     Dosage: UNK
     Route: 065

REACTIONS (12)
  - Urinary retention [Unknown]
  - Blood pressure decreased [Unknown]
  - Weight increased [Unknown]
  - Toothache [Unknown]
  - Pain in extremity [Unknown]
  - Anaemia [Unknown]
  - Cystitis [Unknown]
  - Weight decreased [Unknown]
  - Oedema [Unknown]
  - Tinnitus [Unknown]
  - Cardiothoracic ratio decreased [Unknown]
  - Blood pressure increased [Unknown]

NARRATIVE: CASE EVENT DATE: 20250312
